FAERS Safety Report 8432262-8 (Version None)
Quarter: 2012Q2

REPORT INFORMATION
  Report Type: 
  Country: None (occurrence: None)
  Receive Date: 20120613
  Receipt Date: 20120607
  Transmission Date: 20120825
  Serious: Yes (Other)
  Sender: FDA-Public Use
  Company Number: PHHY2012BB049474

PATIENT
  Age: 62 Year
  Sex: Female

DRUGS (5)
  1. BENDROFLUMETHIAZIDE [Concomitant]
     Dosage: 2.5 MG, PER DAY
     Route: 048
  2. AMLODIPINE [Concomitant]
     Dosage: 5 MG, PER DAY
     Route: 048
  3. PROPRANOLOL [Concomitant]
     Dosage: 10 MG, PER DAY
     Route: 048
  4. PROPYL-THIOURACIL [Concomitant]
     Dosage: 50 MG, BID
     Route: 048
  5. DIOVAN [Suspect]
     Indication: HYPERTENSION
     Dosage: 160 MG, PER DAY
     Route: 048
     Dates: start: 20111201

REACTIONS (3)
  - DYSPNOEA [None]
  - CHEST DISCOMFORT [None]
  - ASTHMA [None]
